FAERS Safety Report 8314775-2 (Version None)
Quarter: 2012Q2

REPORT INFORMATION
  Report Type: 
  Country: None (occurrence: None)
  Receive Date: 20120426
  Receipt Date: 20110808
  Transmission Date: 20120825
  Serious: Yes (Other)
  Sender: FDA-Public Use
  Company Number: US-TEVA-US024994

PATIENT
  Sex: Female
  Weight: 54.48 kg

DRUGS (15)
  1. TRAMADOL HYDROCHLORIDE AND ACETAMINOPHEN [Concomitant]
     Indication: PAIN
     Route: 048
     Dates: start: 20050101
  2. BUPROPION HCL [Concomitant]
     Indication: BIPOLAR II DISORDER
     Dosage: 150 MILLIGRAM;
     Route: 048
     Dates: start: 20080501
  3. PREMPRO [Concomitant]
     Indication: HORMONE REPLACEMENT THERAPY
     Route: 048
  4. LYRICA [Concomitant]
     Indication: PAIN
     Dosage: 450 MILLIGRAM;
     Route: 048
  5. PAROXETINE [Concomitant]
     Indication: BIPOLAR II DISORDER
     Dosage: 30 MILLIGRAM;
     Route: 048
     Dates: start: 20080501
  6. D-RIBOSE [Concomitant]
     Indication: MYALGIA
  7. L-CARNITINE [Concomitant]
     Indication: CHRONIC FATIGUE SYNDROME
     Dosage: 500 MILLIGRAM;
     Route: 048
     Dates: start: 20080501
  8. B COMPLEX VITAMINS [Concomitant]
     Indication: CHRONIC FATIGUE SYNDROME
     Route: 048
     Dates: start: 20080501
  9. MELATONIN [Concomitant]
     Indication: DYSSOMNIA
     Route: 048
     Dates: start: 20071101
  10. PROVIGIL [Suspect]
     Dosage: 100 MILLIGRAM;
     Route: 048
     Dates: start: 20080101
  11. D-RIBOSE [Concomitant]
     Indication: CHRONIC FATIGUE SYNDROME
     Route: 048
     Dates: start: 20080501
  12. PROVIGIL [Suspect]
     Dosage: 200 MILLIGRAM;
     Route: 048
     Dates: start: 20081106
  13. CLONAZEPAM [Concomitant]
     Indication: ANXIETY
     Route: 048
     Dates: start: 20071101
  14. COENZYME Q10 [Concomitant]
     Indication: CHRONIC FATIGUE SYNDROME
     Dosage: 200 MILLIGRAM;
     Route: 048
     Dates: start: 20080501
  15. PROVIGIL [Suspect]
     Indication: CHRONIC FATIGUE SYNDROME
     Dosage: 100 MILLIGRAM;
     Route: 048
     Dates: start: 20070101

REACTIONS (2)
  - FEELING JITTERY [None]
  - HYPOMANIA [None]
